FAERS Safety Report 10533091 (Version 1)
Quarter: 2014Q4

REPORT INFORMATION
  Report Type: Spontaneous
  Country: US (occurrence: US)
  Receive Date: 20141022
  Receipt Date: 20141022
  Transmission Date: 20150529
  Serious: No
  Sender: FDA-Public Use
  Company Number: US-BIOGENIDEC-2014BI109866

PATIENT
  Age: 59 Year
  Sex: Female

DRUGS (7)
  1. CLARITIN-D 12 HOUR [Concomitant]
     Active Substance: LORATADINE\PSEUDOEPHEDRINE SULFATE
  2. CODEINE [Concomitant]
     Active Substance: CODEINE
  3. BIOTIN [Concomitant]
     Active Substance: BIOTIN
  4. APAP [Concomitant]
     Active Substance: ACETAMINOPHEN
  5. BUTALBITAL [Concomitant]
     Active Substance: BUTALBITAL
  6. AVONEX [Suspect]
     Active Substance: INTERFERON BETA-1A
     Indication: MULTIPLE SCLEROSIS
     Route: 030
  7. CAFFEINE. [Concomitant]
     Active Substance: CAFFEINE

REACTIONS (2)
  - Hepatic cyst [Not Recovered/Not Resolved]
  - Hepatic enzyme increased [Not Recovered/Not Resolved]
